FAERS Safety Report 10086362 (Version 1)
Quarter: 2014Q2

REPORT INFORMATION
  Report Type: Spontaneous
  Country: FR (occurrence: FR)
  Receive Date: 20140418
  Receipt Date: 20140418
  Transmission Date: 20141212
  Serious: Yes (Hospitalization)
  Sender: FDA-Public Use
  Company Number: FR-SA-2014SA043782

PATIENT
  Age: 78 Year
  Sex: Male

DRUGS (7)
  1. APROVEL [Suspect]
     Indication: PRODUCT USED FOR UNKNOWN INDICATION
     Route: 048
     Dates: end: 20131103
  2. LASILIX [Suspect]
     Indication: PRODUCT USED FOR UNKNOWN INDICATION
     Route: 048
     Dates: end: 20131103
  3. LAMICTAL [Suspect]
     Indication: EPILEPSY
     Dosage: STRENGTH:50 MG
     Route: 048
     Dates: start: 20130924, end: 20131001
  4. LAMICTAL [Suspect]
     Indication: EPILEPSY
     Route: 048
     Dates: start: 20131001, end: 20131008
  5. LAMICTAL [Suspect]
     Indication: EPILEPSY
     Route: 048
     Dates: start: 20131008, end: 20131015
  6. LAMICTAL [Suspect]
     Indication: EPILEPSY
     Route: 048
     Dates: start: 20131015, end: 20131022
  7. TEGRETOL [Suspect]
     Indication: EPILEPSY
     Dosage: STRENGTH:200 MG
     Route: 048
     Dates: start: 20131022, end: 20131105

REACTIONS (1)
  - Rash maculo-papular [Recovered/Resolved]
